FAERS Safety Report 16399961 (Version 1)
Quarter: 2019Q2

REPORT INFORMATION
  Report Type: Spontaneous
  Country: FR (occurrence: FR)
  Receive Date: 20190606
  Receipt Date: 20190606
  Transmission Date: 20190711
  Serious: Yes (Congenital Anomaly, Other)
  Sender: FDA-Public Use
  Company Number: FR-JNJFOC-20190538383

PATIENT
  Sex: Male
  Weight: 3 kg

DRUGS (3)
  1. DEPAKINE CHRONO [Suspect]
     Active Substance: VALPROATE SODIUM
     Indication: EPILEPSY
     Route: 064
     Dates: start: 20061111, end: 20070730
  2. FOLIC ACID. [Concomitant]
     Active Substance: FOLIC ACID
     Route: 064
  3. TOPIRAMATE. [Suspect]
     Active Substance: TOPIRAMATE
     Indication: EPILEPSY
     Route: 064
     Dates: start: 20061111, end: 20070730

REACTIONS (17)
  - Anxiety [Unknown]
  - Psychomotor skills impaired [Unknown]
  - Disturbance in attention [Unknown]
  - Fatigue [Unknown]
  - Learning disorder [Unknown]
  - Astigmatism [Unknown]
  - Dysmorphism [Unknown]
  - Language disorder [Unknown]
  - Exomphalos [Recovered/Resolved]
  - Hydrocele [Unknown]
  - Behaviour disorder [Unknown]
  - Fallot^s tetralogy [Unknown]
  - Myopia [Unknown]
  - Nystagmus [Recovered/Resolved]
  - Pectus excavatum [Unknown]
  - Foot deformity [Unknown]
  - Foetal exposure during pregnancy [Recovered/Resolved]
